FAERS Safety Report 8157599-1 (Version None)
Quarter: 2012Q1

REPORT INFORMATION
  Report Type: 
  Country: None (occurrence: None)
  Receive Date: 20120222
  Receipt Date: 20111004
  Transmission Date: 20120608
  Serious: No
  Sender: FDA-Public Use
  Company Number: US-ASTRAZENECA-2011SE52071

PATIENT
  Age: 59 Year
  Sex: Female

DRUGS (26)
  1. DIAZEPAM [Concomitant]
  2. GABAPENTIN [Concomitant]
  3. LOMOTIL [Concomitant]
     Dosage: PRN 2.5/.025
  4. NEXIUM [Suspect]
     Route: 048
  5. CALCIUM WITH MAGNESIUM AND ZINC [Concomitant]
  6. KLOR-CON [Concomitant]
  7. MULTI VIT WITH MINERALS [Concomitant]
  8. LUNESTA [Concomitant]
  9. PLAVIX [Concomitant]
  10. LANSOPRAZOLE ER [Concomitant]
  11. ZOLOFT [Concomitant]
  12. ESTRADIOL [Concomitant]
  13. SIMVASTATIN [Concomitant]
  14. TIZANIDINE HCL [Concomitant]
  15. ATENOL/CHLOR [Concomitant]
     Dosage: 50/25
  16. HYDROCO PAP [Concomitant]
     Dosage: PRN 7.5/500
  17. NIACIN [Concomitant]
  18. FLUTICASONE NASAL [Concomitant]
     Route: 045
  19. ATENOLOL [Suspect]
     Route: 048
  20. ZOMIG [Suspect]
     Indication: MIGRAINE
     Route: 048
  21. ALLOPURINOL [Concomitant]
  22. MEPERIDINE HCL [Concomitant]
     Dosage: PRN
  23. OMEGA [Concomitant]
  24. ACETAMINOPHEN [Concomitant]
     Dosage: PRN
  25. ALBUTEROL SPRAY [Concomitant]
     Dosage: PRN
  26. PHENERGAN [Concomitant]
     Dosage: 50 MG PRN

REACTIONS (6)
  - DRUG HYPERSENSITIVITY [None]
  - DRUG DOSE OMISSION [None]
  - IMMUNE SYSTEM DISORDER [None]
  - LARYNGITIS [None]
  - MALAISE [None]
  - HALLUCINATION [None]
